FAERS Safety Report 13775357 (Version 1)
Quarter: 2017Q3

REPORT INFORMATION
  Report Type: Spontaneous
  Country: US (occurrence: US)
  Receive Date: 20170720
  Receipt Date: 20170720
  Transmission Date: 20171127
  Serious: No
  Sender: FDA-Public Use
  Company Number: US-PFIZER INC-2017309223

PATIENT
  Sex: Male
  Weight: 81.65 kg

DRUGS (5)
  1. CYMBALTA [Concomitant]
     Active Substance: DULOXETINE HYDROCHLORIDE
     Indication: STRESS
     Dosage: 60 MG, 2X/DAY (TWO CAPSULES IN THE MORNING BY MOUTH)
     Route: 048
  2. LYRICA [Suspect]
     Active Substance: PREGABALIN
     Indication: NERVE INJURY
     Dosage: 150 MG, 2X/DAY
     Route: 048
  3. TRAZODONE [Concomitant]
     Active Substance: TRAZODONE HYDROCHLORIDE
     Indication: SLEEP DISORDER
     Dosage: 50 MG, 1X/DAY
  4. BUSPIRONE [Concomitant]
     Active Substance: BUSPIRONE HYDROCHLORIDE
     Indication: STRESS
     Dosage: 10MG, HALF TO ONE TABLET TWICE DAILY, AS NEEDED
  5. LORAZEPAM. [Concomitant]
     Active Substance: LORAZEPAM
     Indication: STRESS
     Dosage: 1 MG, AS NEEDED (1MG, ONE TABLET BY MOUTH THREE TIMES DAILY, AS NEEDED)
     Route: 048

REACTIONS (5)
  - Withdrawal syndrome [Unknown]
  - Hyperhidrosis [Unknown]
  - Temperature regulation disorder [Unknown]
  - Chills [Unknown]
  - Headache [Unknown]
